FAERS Safety Report 17719836 (Version 1)
Quarter: 2020Q2

REPORT INFORMATION
  Report Type: Spontaneous
  Country: PL (occurrence: PL)
  Receive Date: 20200428
  Receipt Date: 20200428
  Transmission Date: 20200714
  Serious: Yes (Other)
  Sender: FDA-Public Use
  Company Number: PL-MYLANLABS-2020M1041835

PATIENT
  Age: 59 Year
  Sex: Male

DRUGS (3)
  1. LOSARTAN. [Suspect]
     Active Substance: LOSARTAN
     Indication: CARDIOVASCULAR DISORDER
     Dosage: UNK
     Route: 048
  2. RISPERIDONE. [Interacting]
     Active Substance: RISPERIDONE
     Indication: SCHIZOPHRENIA
     Dosage: UNK
  3. INDAPAMIDE. [Concomitant]
     Active Substance: INDAPAMIDE

REACTIONS (2)
  - Drug interaction [Unknown]
  - Atrial fibrillation [Unknown]
